FAERS Safety Report 14826892 (Version 1)
Quarter: 2018Q2

REPORT INFORMATION
  Report Type: Spontaneous
  Country: TR (occurrence: TR)
  Receive Date: 20180430
  Receipt Date: 20180430
  Transmission Date: 20180711
  Serious: Yes (Death, Life-Threatening, Hospitalization)
  Sender: FDA-Public Use
  Company Number: TR-MYLANLABS-2018M1026664

PATIENT
  Age: 40 Year
  Sex: Female

DRUGS (1)
  1. DICLOFENAC [Suspect]
     Active Substance: DICLOFENAC
     Indication: OTITIS MEDIA
     Dosage: SINGLE INJECTION ADMINISTERED
     Route: 030

REACTIONS (10)
  - Rhabdomyolysis [Fatal]
  - Multiple organ dysfunction syndrome [Fatal]
  - Respiratory failure [Unknown]
  - Streptococcal infection [Fatal]
  - Klebsiella infection [Fatal]
  - Sepsis [Fatal]
  - Renal tubular necrosis [Fatal]
  - Acute respiratory distress syndrome [Fatal]
  - Acute kidney injury [Fatal]
  - Embolia cutis medicamentosa [Fatal]
